FAERS Safety Report 6032193-7 (Version None)
Quarter: 2009Q1

REPORT INFORMATION
  Report Type: 
  Country: None (occurrence: None)
  Receive Date: 20090108
  Receipt Date: 20081231
  Transmission Date: 20090719
  Serious: Yes (Other)
  Sender: FDA-Public Use
  Company Number: BR-ROXANE LABORATORIES, INC.-2008-RO-00510RO

PATIENT
  Age: 40 Year
  Sex: Male

DRUGS (4)
  1. CYCLOPHOSPHAMIDE [Suspect]
     Indication: BONE MARROW CONDITIONING REGIMEN
  2. BUSULFAN [Suspect]
     Indication: BONE MARROW CONDITIONING REGIMEN
  3. CYCLOSPORINE [Suspect]
     Indication: PROPHYLAXIS AGAINST GRAFT VERSUS HOST DISEASE
  4. PREDNISONE [Concomitant]
     Indication: ACUTE GRAFT VERSUS HOST DISEASE IN SKIN

REACTIONS (9)
  - ACUTE GRAFT VERSUS HOST DISEASE IN SKIN [None]
  - CHRONIC GRAFT VERSUS HOST DISEASE [None]
  - HYPERKERATOSIS [None]
  - LEUKOPLAKIA [None]
  - LICHENIFICATION [None]
  - ORAL DISORDER [None]
  - ORAL PAIN [None]
  - PAPILLOMA [None]
  - THROMBOCYTOPENIA [None]
